FAERS Safety Report 10772825 (Version 1)
Quarter: 2015Q1

REPORT INFORMATION
  Report Type: Other
  Country: US (occurrence: US)
  Receive Date: 20150207
  Receipt Date: 20150207
  Transmission Date: 20150721
  Serious: Yes (Other)
  Sender: FDA-Public Use
  Company Number: US-ACORDA-ACO_106169_2014

PATIENT
  Age: 32 Year
  Sex: Female
  Weight: 61.68 kg

DRUGS (15)
  1. AMPYRA [Suspect]
     Active Substance: DALFAMPRIDINE
     Indication: MULTIPLE SCLEROSIS
     Dosage: 10 MG, Q 12 HRS
     Route: 048
     Dates: start: 201404
  2. CRANBERRY. [Concomitant]
     Active Substance: CRANBERRY
     Indication: PRODUCT USED FOR UNKNOWN INDICATION
  3. MULTIVITAMINS [Concomitant]
     Active Substance: VITAMINS
     Indication: PRODUCT USED FOR UNKNOWN INDICATION
     Dosage: 1 TAB DAILY
  4. BACLOFEN. [Concomitant]
     Active Substance: BACLOFEN
     Indication: PRODUCT USED FOR UNKNOWN INDICATION
     Dosage: 10 MG, ONE AT BEDTIME X 1 WEEK, THEN 1 TAB TWICE DAILY X 1 WEEK, THEN 1 TAB THREE TIMES DAILY
     Route: 048
     Dates: start: 20140819
  5. NORTRIPTYLINE HCL [Concomitant]
     Active Substance: NORTRIPTYLINE HYDROCHLORIDE
     Indication: PRODUCT USED FOR UNKNOWN INDICATION
     Dosage: 25 MG, 2 CAP AT BEDTIME
     Route: 048
     Dates: start: 20141001
  6. NORTRIPTYLINE HCL [Concomitant]
     Active Substance: NORTRIPTYLINE HYDROCHLORIDE
     Dosage: 50 MG, HS
  7. CLONAZEPAM. [Concomitant]
     Active Substance: CLONAZEPAM
     Indication: PRODUCT USED FOR UNKNOWN INDICATION
     Dosage: 1 MG, BID
     Route: 048
     Dates: start: 20090908
  8. FISH OIL [Concomitant]
     Active Substance: FISH OIL
     Indication: PRODUCT USED FOR UNKNOWN INDICATION
     Dosage: 500 MG, BID
  9. VITAMIN B12 [Concomitant]
     Active Substance: CYANOCOBALAMIN
     Indication: PRODUCT USED FOR UNKNOWN INDICATION
     Dosage: 500 IU, QD
  10. TECFIDERA [Suspect]
     Active Substance: DIMETHYL FUMARATE
     Indication: MULTIPLE SCLEROSIS
     Dosage: 120 MG TWICE DAILY FOR 7 DAYS, 240 MG TWICE DAILY FOR 23 DAYS
     Route: 048
     Dates: start: 201407
  11. CALCIUM [Concomitant]
     Active Substance: CALCIUM
     Indication: PRODUCT USED FOR UNKNOWN INDICATION
     Dosage: 500 MG, UNK
     Route: 048
     Dates: start: 20080527
  12. NAMENDA [Concomitant]
     Active Substance: MEMANTINE HYDROCHLORIDE
     Indication: PRODUCT USED FOR UNKNOWN INDICATION
     Dosage: 10 MG, BID
     Route: 048
  13. VITAMIN D [Concomitant]
     Active Substance: CHOLECALCIFEROL
     Indication: PRODUCT USED FOR UNKNOWN INDICATION
     Dosage: 1000 IU, UNK
     Route: 048
     Dates: start: 20080527
  14. AUBAGIO [Concomitant]
     Active Substance: TERIFLUNOMIDE
     Indication: PRODUCT USED FOR UNKNOWN INDICATION
     Dosage: 14 MG
     Route: 048
  15. GABAPENTIN. [Concomitant]
     Active Substance: GABAPENTIN
     Indication: PRODUCT USED FOR UNKNOWN INDICATION
     Dosage: 300 MG, INCREASE BY ONE CAP EVERY WEEK UNTIL GOAL OF 1200 MG (4 CAPS) THREE TIMES DAILY
     Route: 048
     Dates: start: 20141001

REACTIONS (21)
  - Neurogenic bladder [Unknown]
  - Fatigue [Unknown]
  - Gait disturbance [Unknown]
  - Eye pain [Unknown]
  - Choking [Unknown]
  - Pollakiuria [Unknown]
  - Neck pain [Unknown]
  - Insomnia [Unknown]
  - Urinary tract infection [Recovering/Resolving]
  - Suicidal behaviour [Recovered/Resolved]
  - Urinary retention [Unknown]
  - Urge incontinence [Unknown]
  - Pain in extremity [Unknown]
  - Multiple sclerosis [Unknown]
  - Muscle spasms [Unknown]
  - Tremor [Unknown]
  - Headache [Unknown]
  - Disorientation [Recovered/Resolved]
  - Mood altered [Recovered/Resolved]
  - Depression [Unknown]
  - Muscular weakness [Unknown]

NARRATIVE: CASE EVENT DATE: 201407
